FAERS Safety Report 5312120-8 (Version None)
Quarter: 2007Q2

REPORT INFORMATION
  Report Type: 
  Country: None (occurrence: None)
  Receive Date: 20070430
  Receipt Date: 20060724
  Transmission Date: 20071010
  Serious: No
  Sender: FDA-Public Use
  Company Number: 2006UW14965

PATIENT
  Age: 61 Year
  Sex: Female
  Weight: 86.2 kg

DRUGS (7)
  1. NEXIUM [Suspect]
     Indication: GASTROOESOPHAGEAL REFLUX DISEASE
     Route: 048
  2. TOPROL-XL [Concomitant]
     Route: 048
  3. ZETIA [Concomitant]
  4. TEVETIN [Concomitant]
  5. ENALAPRIL [Concomitant]
  6. DIOVAN [Concomitant]
  7. POTASSIUM ACETATE [Concomitant]

REACTIONS (3)
  - DIARRHOEA [None]
  - STRESS [None]
  - WEIGHT INCREASED [None]
